FAERS Safety Report 6865324-7 (Version None)
Quarter: 2010Q3

REPORT INFORMATION
  Report Type: 
  Country: None (occurrence: None)
  Receive Date: 20100721
  Receipt Date: 20080422
  Transmission Date: 20110219
  Serious: No
  Sender: FDA-Public Use
  Company Number: US-PFIZER INC-2008036923

PATIENT
  Sex: Male
  Weight: 72.6 kg

DRUGS (2)
  1. CHANTIX [Suspect]
     Indication: SMOKING CESSATION THERAPY
     Dates: start: 20080301
  2. ADVAIR DISKUS 100/50 [Concomitant]
     Indication: ASTHMA

REACTIONS (2)
  - DRUG SCREEN POSITIVE [None]
  - INCORRECT DOSE ADMINISTERED [None]
